FAERS Safety Report 8730016 (Version 1)
Quarter: 2012Q4

REPORT INFORMATION
  Report Type: 
  Country: US (occurrence: US)
  Receive Date: 20120905
  Receipt Date: 20120905
  Transmission Date: 20130627
  Serious: Yes (Other)
  Sender: FDA-Public Use
  Company Number: US-GLAXOSMITHKLINE-A0982366A

PATIENT
  Age: 61 Year
  Sex: Female
  Weight: 94.5 kg

DRUGS (16)
  1. VOTRIENT [Suspect]
     Indication: RENAL CANCER
     Dosage: 800MG Per day
     Route: 048
  2. XANAX [Concomitant]
  3. NORVASC [Concomitant]
  4. HYDROCHLOROTHIAZIDE [Concomitant]
  5. LEVOTHYROXIN [Concomitant]
  6. SYMBICORT [Concomitant]
  7. CRESTOR [Concomitant]
  8. ESTRACE [Concomitant]
  9. LEXAPRO [Concomitant]
  10. TYLENOL [Concomitant]
  11. VITAMIN D3 [Concomitant]
  12. ASPIRIN [Concomitant]
  13. AZOR (ALPRAZOLAM) [Concomitant]
  14. COZAAR [Concomitant]
  15. ZOFRAN [Concomitant]
  16. SENNA [Concomitant]

REACTIONS (11)
  - Liver function test abnormal [Unknown]
  - Depression [Unknown]
  - Anxiety [Unknown]
  - Dizziness [Unknown]
  - Fatigue [Unknown]
  - Diarrhoea [Unknown]
  - Abdominal discomfort [Unknown]
  - Nausea [Unknown]
  - Alopecia [Unknown]
  - Constipation [Unknown]
  - Decreased appetite [Unknown]
